FAERS Safety Report 5093635-7 (Version None)
Quarter: 2006Q3

REPORT INFORMATION
  Report Type: 
  Country: None (occurrence: None)
  Receive Date: 20060829
  Receipt Date: 20060815
  Transmission Date: 20061208
  Serious: Yes (Other)
  Sender: FDA-Public Use
  Company Number: POMP-10785

PATIENT
  Age: 5 Month
  Sex: Male
  Weight: 7.5 kg

DRUGS (8)
  1. MYOZYME [Suspect]
     Indication: GLYCOGEN STORAGE DISEASE TYPE II
     Dosage: 20 MG/KG Q2WKS IV
     Route: 042
     Dates: start: 20060721
  2. ALPHA-GLUCOSIDASE (HUMAN, RECOMBINANT, CHO CELLS, GENZYME) [Suspect]
     Indication: GLYCOGEN STORAGE DISEASE TYPE II
     Dosage: 20 MG/KG Q2WKS IV
     Route: 042
     Dates: start: 20060301, end: 20060707
  3. CLARINEX [Concomitant]
  4. DIPHENHYDRAMINE [Concomitant]
  5. RANITIDINE [Concomitant]
  6. XOPENEX [Concomitant]
  7. PULMICORT [Concomitant]
  8. REGLAN [Concomitant]

REACTIONS (6)
  - BLOOD IMMUNOGLOBULIN E INCREASED [None]
  - BLOOD IMMUNOGLOBULIN G INCREASED [None]
  - BLOOD PRESSURE DECREASED [None]
  - INFUSION RELATED REACTION [None]
  - TACHYCARDIA [None]
  - URTICARIA [None]
